FAERS Safety Report 12948272 (Version 2)
Quarter: 2016Q4

REPORT INFORMATION
  Report Type: Report from Study
  Country: KR (occurrence: KR)
  Receive Date: 20161117
  Receipt Date: 20161124
  Transmission Date: 20170207
  Serious: Yes (Hospitalization)
  Sender: FDA-Public Use
  Company Number: KR-B.I. PHARMACEUTICALS,INC./RIDGEFIELD-2016-BI-075638

PATIENT
  Age: 75 Year
  Sex: Male
  Weight: 69 kg

DRUGS (7)
  1. SPEETIN [Concomitant]
     Indication: CORONARY ARTERY OCCLUSION
     Route: 048
     Dates: start: 20161025
  2. VASTINAN MR [Concomitant]
     Indication: PRODUCT USED FOR UNKNOWN INDICATION
     Route: 048
  3. SIGMART [Concomitant]
     Active Substance: NICORANDIL
     Indication: CORONARY ARTERY OCCLUSION
     Route: 048
     Dates: start: 20161025
  4. ADALAT [Concomitant]
     Active Substance: NIFEDIPINE
     Indication: CORONARY ARTERY OCCLUSION
     Route: 048
     Dates: start: 20161025
  5. PRADAXA [Suspect]
     Active Substance: DABIGATRAN ETEXILATE MESYLATE
     Indication: ATRIAL FIBRILLATION
     Route: 048
     Dates: start: 20161025, end: 20161030
  6. MOLSITON [Concomitant]
     Indication: CORONARY ARTERY OCCLUSION
     Route: 048
     Dates: start: 20161025
  7. CONCOR [Concomitant]
     Active Substance: BISOPROLOL FUMARATE
     Indication: CORONARY ARTERY OCCLUSION
     Route: 048
     Dates: start: 20161025

REACTIONS (1)
  - Cerebrovascular accident [Not Recovered/Not Resolved]

NARRATIVE: CASE EVENT DATE: 20161030
